FAERS Safety Report 8177153-5 (Version None)
Quarter: 2012Q1

REPORT INFORMATION
  Report Type: 
  Country: None (occurrence: None)
  Receive Date: 20120301
  Receipt Date: 20120227
  Transmission Date: 20120608
  Serious: Yes (Hospitalization)
  Sender: FDA-Public Use
  Company Number: GB-GLAXOSMITHKLINE-B0784193A

PATIENT
  Age: 74 Year
  Sex: Male

DRUGS (2)
  1. REQUIP XL [Suspect]
     Indication: PRODUCT USED FOR UNKNOWN INDICATION
  2. APOMORPHINE [Suspect]
     Indication: PARKINSON'S DISEASE

REACTIONS (1)
  - MYOCARDIAL INFARCTION [None]
